FAERS Safety Report 7137599-0 (Version None)
Quarter: 2010Q4

REPORT INFORMATION
  Report Type: 
  Country: None (occurrence: None)
  Receive Date: 20101206
  Receipt Date: 20101130
  Transmission Date: 20110411
  Serious: Yes (Hospitalization, Other)
  Sender: FDA-Public Use
  Company Number: DE-JNJFOC-20101105403

PATIENT
  Sex: Female
  Weight: 68 kg

DRUGS (3)
  1. RISPERDAL [Suspect]
     Indication: ILL-DEFINED DISORDER
     Route: 065
  2. RISPERDAL [Suspect]
     Indication: ILL-DEFINED DISORDER
     Dosage: 1 MG AND 2 MG
     Route: 048
  3. COFFEIN [Suspect]
     Indication: ILL-DEFINED DISORDER
     Route: 065

REACTIONS (21)
  - BLOOD PRESSURE FLUCTUATION [None]
  - COMPULSIONS [None]
  - CONFUSIONAL STATE [None]
  - COUGH [None]
  - ERYTHEMA [None]
  - FATIGUE [None]
  - HALLUCINATION [None]
  - HYPERSENSITIVITY [None]
  - LACRIMAL DISORDER [None]
  - MEMORY IMPAIRMENT [None]
  - MUSCULOSKELETAL STIFFNESS [None]
  - NIGHTMARE [None]
  - OEDEMA [None]
  - OVERWEIGHT [None]
  - PANIC ATTACK [None]
  - PSYCHOTIC DISORDER [None]
  - RHINORRHOEA [None]
  - SHOCK [None]
  - URTICARIA [None]
  - VERTIGO [None]
  - VISUAL ACUITY REDUCED [None]
